FAERS Safety Report 13577298 (Version 2)
Quarter: 2017Q4

REPORT INFORMATION
  Report Type: Spontaneous
  Country: US (occurrence: US)
  Receive Date: 20170524
  Receipt Date: 20171217
  Transmission Date: 20180320
  Serious: No
  Sender: FDA-Public Use
  Company Number: US-LUNDBECK-DKLU2030333

PATIENT
  Age: 76 Year
  Sex: Male

DRUGS (8)
  1. VITAMIN E [Concomitant]
     Active Substance: .ALPHA.-TOCOPHEROL
     Indication: PRODUCT USED FOR UNKNOWN INDICATION
     Route: 065
  2. VITAMIN D [Concomitant]
     Active Substance: CHOLECALCIFEROL
     Indication: PRODUCT USED FOR UNKNOWN INDICATION
     Route: 065
  3. MIDODRINE [Concomitant]
     Active Substance: MIDODRINE
     Indication: PRODUCT USED FOR UNKNOWN INDICATION
     Route: 065
  4. TAMSULOSIN [Concomitant]
     Active Substance: TAMSULOSIN
     Indication: PRODUCT USED FOR UNKNOWN INDICATION
     Route: 065
  5. NORTHERA [Suspect]
     Active Substance: DROXIDOPA
     Route: 065
  6. NORTHERA [Suspect]
     Active Substance: DROXIDOPA
     Indication: ORTHOSTATIC HYPOTENSION
     Route: 048
     Dates: start: 201704
  7. NORTHERA [Suspect]
     Active Substance: DROXIDOPA
     Route: 065
  8. NORTHERA [Suspect]
     Active Substance: DROXIDOPA
     Dosage: SCHEDULE B
     Route: 065

REACTIONS (13)
  - Paraesthesia [Not Recovered/Not Resolved]
  - Ataxia [Not Recovered/Not Resolved]
  - Dizziness postural [Recovered/Resolved]
  - Hypotension [Not Recovered/Not Resolved]
  - Drug dose omission [Recovered/Resolved]
  - Vertigo [Not Recovered/Not Resolved]
  - Memory impairment [Unknown]
  - Sensory loss [Not Recovered/Not Resolved]
  - Fall [Not Recovered/Not Resolved]
  - Orthostatic hypotension [Not Recovered/Not Resolved]
  - Muscular weakness [Not Recovered/Not Resolved]
  - Balance disorder [Not Recovered/Not Resolved]
  - Autonomic neuropathy [Not Recovered/Not Resolved]

NARRATIVE: CASE EVENT DATE: 201704
